FAERS Safety Report 8470863-1 (Version None)
Quarter: 2012Q2

REPORT INFORMATION
  Report Type: 
  Country: None (occurrence: None)
  Receive Date: 20120627
  Receipt Date: 20120621
  Transmission Date: 20120825
  Serious: Yes (Other)
  Sender: FDA-Public Use
  Company Number: GB-ASTELLAS-2012EU003538

PATIENT
  Sex: Male
  Weight: 75 kg

DRUGS (5)
  1. VESICARE [Suspect]
     Dosage: 5 MG, UID/QD
     Route: 048
     Dates: start: 20110701, end: 20111001
  2. AMLODIPINE [Concomitant]
     Dosage: 10 MG, UID/QD
     Route: 048
  3. IRBESARTAN [Concomitant]
     Dosage: 150 MG, UID/QD
     Route: 048
  4. EZETIMIBE [Concomitant]
     Dosage: 10 MG, UID/QD
     Route: 048
  5. LANSOPRAZOLE [Concomitant]
     Dosage: 30 MG, UID/QD
     Route: 048

REACTIONS (3)
  - VISION BLURRED [None]
  - DRY MOUTH [None]
  - CATARACT [None]
